FAERS Safety Report 6993839-X (Version None)
Quarter: 2010Q3

REPORT INFORMATION
  Report Type: 
  Country: None (occurrence: None)
  Receive Date: 20100917
  Receipt Date: 20090918
  Transmission Date: 20110219
  Serious: No
  Sender: FDA-Public Use
  Company Number: US-ASTRAZENECA-2009UW20359

PATIENT
  Age: 48 Year
  Sex: Female
  Weight: 65.8 kg

DRUGS (7)
  1. SEROQUEL [Suspect]
     Indication: SLEEP DISORDER
     Dosage: 100-300 MG
     Route: 048
     Dates: start: 20030101, end: 20070101
  2. ABILIFY [Concomitant]
     Dosage: 20-30MG
  3. RISPERDAL [Concomitant]
  4. TOPAMAX [Concomitant]
  5. LEXAPRO [Concomitant]
  6. INVEGA [Concomitant]
  7. CLOZEPAM [Concomitant]

REACTIONS (2)
  - GASTROINTESTINAL DISORDER [None]
  - TYPE 2 DIABETES MELLITUS [None]
